FAERS Safety Report 8839556 (Version 1)
Quarter: 2012Q4

REPORT INFORMATION
  Report Type: 
  Country: US (occurrence: US)
  Receive Date: 20121015
  Receipt Date: 20121015
  Transmission Date: 20130627
  Serious: Yes (Death)
  Sender: FDA-Public Use
  Company Number: PHEH2012US019584

PATIENT
  Age: 61 Year
  Sex: Female

DRUGS (1)
  1. AFINITOR [Suspect]
     Indication: BREAST CANCER FEMALE
     Dosage: 10 mg, daily
     Route: 048
     Dates: start: 20120922

REACTIONS (3)
  - Death [Fatal]
  - Constipation [Unknown]
  - Stomatitis [Unknown]
